FAERS Safety Report 26144987 (Version 1)
Quarter: 2025Q4

REPORT INFORMATION
  Report Type: Spontaneous
  Country: JP (occurrence: JP)
  Receive Date: 20251211
  Receipt Date: 20251211
  Transmission Date: 20260117
  Serious: Yes (Other)
  Sender: UCB
  Company Number: JP-UCBJ-CD202516245UCBPHAPROD

PATIENT
  Age: 3 Decade

DRUGS (1)
  1. FINTEPLA [Suspect]
     Active Substance: FENFLURAMINE
     Indication: Lennox-Gastaut syndrome
     Dosage: 11.8 MILLILITER, UNK

REACTIONS (1)
  - Epilepsy [Not Recovered/Not Resolved]
